FAERS Safety Report 5884796-8 (Version None)
Quarter: 2008Q3

REPORT INFORMATION
  Report Type: 
  Country: None (occurrence: None)
  Receive Date: 20080915
  Receipt Date: 20080915
  Transmission Date: 20090109
  Serious: No
  Sender: FDA-Public Use
  Company Number: None

PATIENT
  Age: 40 Year
  Sex: Female
  Weight: 61.2356 kg

DRUGS (1)
  1. YAZ [Suspect]
     Indication: OVARIAN CYST
     Dosage: 1 PILL DAILY PO
     Route: 048
     Dates: start: 20080803, end: 20080903

REACTIONS (6)
  - DIZZINESS [None]
  - FATIGUE [None]
  - FOOD AVERSION [None]
  - HEADACHE [None]
  - NAUSEA [None]
  - NIGHT SWEATS [None]
